FAERS Safety Report 25972699 (Version 1)
Quarter: 2025Q4

REPORT INFORMATION
  Report Type: Spontaneous
  Country: US (occurrence: US)
  Receive Date: 20251029
  Receipt Date: 20251029
  Transmission Date: 20260118
  Serious: No
  Sender: HIKMA
  Company Number: US-HIKMA PHARMACEUTICALS USA INC.-US-H14001-24-11446

PATIENT
  Sex: Female

DRUGS (3)
  1. DICYCLOMINE [Suspect]
     Active Substance: DICYCLOMINE HYDROCHLORIDE
     Indication: Gastrointestinal infection
     Dosage: UNKNOWN
     Route: 065
  2. DUPILUMAB [Concomitant]
     Active Substance: DUPILUMAB
     Dosage: 300 MILLIGRAM, QOW
     Route: 058
     Dates: start: 2023
  3. DUPILUMAB [Concomitant]
     Active Substance: DUPILUMAB
     Indication: Dermatitis atopic
     Dosage: 600 MILLIGRAM, ONCE
     Route: 058
     Dates: start: 202303

REACTIONS (9)
  - Tooth extraction [Unknown]
  - Sciatica [Unknown]
  - Pain in extremity [Unknown]
  - Pruritus [Unknown]
  - Dry skin [Unknown]
  - Accidental exposure to product [Unknown]
  - Exposure via skin contact [Unknown]
  - Gastrointestinal infection [Unknown]
  - Weight increased [Unknown]

NARRATIVE: CASE EVENT DATE: 20230101
